FAERS Safety Report 12765071 (Version 2)
Quarter: 2016Q4

REPORT INFORMATION
  Report Type: Spontaneous
  Country: US (occurrence: US)
  Receive Date: 20160921
  Receipt Date: 20161102
  Transmission Date: 20170207
  Serious: Yes (Other)
  Sender: FDA-Public Use
  Company Number: US-BAUSCH-BL-2016-021835

PATIENT
  Age: 45 Year
  Sex: Female
  Weight: 49.94 kg

DRUGS (3)
  1. PREDNISONE. [Suspect]
     Active Substance: PREDNISONE
     Indication: RETINAL PIGMENT EPITHELIOPATHY
     Route: 065
  2. LOTEMAX [Suspect]
     Active Substance: LOTEPREDNOL ETABONATE
     Indication: BLEPHARITIS
     Dosage: ONE DROP IN EACH EYE ONCE IN THE MORNING AND ONCE IN THE EVENING,?USED FOR ABOUT ONE WEEK
     Route: 047
     Dates: start: 201504, end: 2015
  3. PREDNISONE. [Suspect]
     Active Substance: PREDNISONE
     Dosage: TAPERED OFF THE PREDNISONE
     Route: 065

REACTIONS (3)
  - Alopecia [Unknown]
  - Retinal pigment epitheliopathy [Unknown]
  - Wrong technique in product usage process [Unknown]

NARRATIVE: CASE EVENT DATE: 20150514
